FAERS Safety Report 10120968 (Version 1)
Quarter: 2014Q2

REPORT INFORMATION
  Report Type: Spontaneous
  Country: US (occurrence: US)
  Receive Date: 20140425
  Receipt Date: 20140425
  Transmission Date: 20141212
  Serious: Yes (Death)
  Sender: FDA-Public Use
  Company Number: US-GLAXOSMITHKLINE-A1070124A

PATIENT
  Age: 68 Year
  Sex: Female

DRUGS (3)
  1. REQUIP XL [Suspect]
     Indication: PRODUCT USED FOR UNKNOWN INDICATION
     Dosage: 2MG PER DAY
     Route: 048
  2. VENTOLIN [Suspect]
     Indication: ASTHMA
     Route: 055
  3. NO CONCURRENT MEDICATION [Concomitant]

REACTIONS (4)
  - Large intestine perforation [Unknown]
  - Myocardial infarction [Fatal]
  - Cardiac failure [Fatal]
  - Shock [Fatal]
